FAERS Safety Report 7205790-0 (Version None)
Quarter: 2010Q4

REPORT INFORMATION
  Report Type: 
  Country: None (occurrence: None)
  Receive Date: 20101231
  Receipt Date: 20101230
  Transmission Date: 20110411
  Serious: Yes (Other)
  Sender: FDA-Public Use
  Company Number: US-PFIZER INC-2010181607

PATIENT
  Sex: Female

DRUGS (2)
  1. NORVASC [Suspect]
     Indication: HYPERTENSION
     Dosage: UNK
  2. LASIX [Concomitant]
     Indication: FLUID RETENTION
     Dosage: 20 MG, UNK

REACTIONS (5)
  - FEAR [None]
  - FIBROMYALGIA [None]
  - HYPERSOMNIA [None]
  - HYPOAESTHESIA [None]
  - MALAISE [None]
